APPROVED DRUG PRODUCT: PONVORY
Active Ingredient: PONESIMOD
Strength: 5MG
Dosage Form/Route: TABLET;ORAL
Application: N213498 | Product #004
Applicant: VANDA PHARMACEUTICALS INC
Approved: Mar 18, 2021 | RLD: Yes | RS: No | Type: RX

PATENTS:
Patent 12336980 | Expires: Dec 10, 2035
Patent 9062014 | Expires: May 6, 2032
Patent 10220023 | Expires: Dec 10, 2035
Patent 11951097 | Expires: Oct 10, 2042
Patent RE43728 | Expires: Nov 16, 2029

EXCLUSIVITY:
Code: NCE | Date: Mar 18, 2026